FAERS Safety Report 9832085 (Version 1)
Quarter: 2014Q1

REPORT INFORMATION
  Report Type: Spontaneous
  Country: MX (occurrence: MX)
  Receive Date: 20140121
  Receipt Date: 20140121
  Transmission Date: 20141002
  Serious: Yes (Other)
  Sender: FDA-Public Use
  Company Number: PHHY2014MX005724

PATIENT
  Age: 80 Year
  Sex: Female

DRUGS (2)
  1. DIOVAN [Suspect]
     Indication: HYPERTENSION
     Dosage: 160 MG, DAILY
     Route: 048
     Dates: start: 2009, end: 2011
  2. DIOVAN [Suspect]
     Dosage: 320 MG, DAILY
     Route: 048
     Dates: start: 2011

REACTIONS (3)
  - Neoplasm malignant [Recovered/Resolved]
  - Varicose vein [Recovering/Resolving]
  - Rheumatic disorder [Recovering/Resolving]
